FAERS Safety Report 4963959-X (Version None)
Quarter: 2006Q1

REPORT INFORMATION
  Report Type: 
  Country: None (occurrence: None)
  Receive Date: 20060330
  Receipt Date: 20060314
  Transmission Date: 20060701
  Serious: Yes (Disabling)
  Sender: FDA-Public Use
  Company Number: DSA_26778_2005

PATIENT
  Age: 46 Year
  Sex: Female
  Weight: 58.0604 kg

DRUGS (7)
  1. ATIVAN [Suspect]
     Indication: ANXIETY
     Dosage: 2 MG TID PO
     Route: 048
     Dates: start: 20050701
  2. ATIVAN [Suspect]
     Indication: BIPOLAR DISORDER
     Dosage: 2 MG TID PO
     Route: 048
     Dates: start: 20050701
  3. ATIVAN [Suspect]
     Indication: DEPRESSION
     Dosage: 2 MG TID PO
     Route: 048
     Dates: start: 20050701
  4. ATIVAN [Suspect]
     Indication: ANXIETY
     Dosage: DF
     Dates: start: 19840101, end: 20050701
  5. ATIVAN [Suspect]
     Indication: BIPOLAR DISORDER
     Dosage: DF
     Dates: start: 19840101, end: 20050701
  6. ATIVAN [Suspect]
     Indication: DEPRESSION
     Dosage: DF
     Dates: start: 19840101, end: 20050701
  7. TRILEPTAL [Concomitant]

REACTIONS (9)
  - ANXIETY [None]
  - APPETITE DISORDER [None]
  - DISTURBANCE IN ATTENTION [None]
  - DRUG INEFFECTIVE [None]
  - INSOMNIA [None]
  - PAIN [None]
  - SOMNOLENCE [None]
  - SPEECH DISORDER [None]
  - THERAPEUTIC RESPONSE UNEXPECTED WITH DRUG SUBSTITUTION [None]
